FAERS Safety Report 7795173-7 (Version None)
Quarter: 2011Q3

REPORT INFORMATION
  Report Type: 
  Country: None (occurrence: None)
  Receive Date: 20110930
  Receipt Date: 20110915
  Transmission Date: 20111222
  Serious: Yes (Death, Hospitalization)
  Sender: FDA-Public Use
  Company Number: 2011MA012008

PATIENT
  Age: 76 Year
  Sex: Female
  Weight: 48 kg

DRUGS (2)
  1. CISPLATIN [Suspect]
     Indication: BLADDER CANCER
  2. GEMCITABINE HYDROCHLORIDE [Suspect]
     Indication: BLADDER CANCER
     Dates: start: 20090601, end: 20091201

REACTIONS (8)
  - ANAEMIA [None]
  - FACE OEDEMA [None]
  - OEDEMA PERIPHERAL [None]
  - WEIGHT INCREASED [None]
  - BLADDER CANCER [None]
  - INTERSTITIAL LUNG DISEASE [None]
  - CONDITION AGGRAVATED [None]
  - LYMPHOCYTE STIMULATION TEST POSITIVE [None]
